FAERS Safety Report 14983730 (Version 1)
Quarter: 2018Q2

REPORT INFORMATION
  Report Type: Spontaneous
  Country: DE (occurrence: DE)
  Receive Date: 20180607
  Receipt Date: 20180607
  Transmission Date: 20180711
  Serious: Yes (Hospitalization)
  Sender: FDA-Public Use
  Company Number: DE-BIOGEN-2018BI00592100

PATIENT
  Age: 0 Day
  Sex: Male
  Weight: 3.76 kg

DRUGS (1)
  1. TECFIDERA [Suspect]
     Active Substance: DIMETHYL FUMARATE
     Indication: MATERNAL EXPOSURE TIMING UNSPECIFIED
     Dosage: MAINTENANCE DOSE
     Route: 064
     Dates: start: 201412, end: 201701

REACTIONS (2)
  - Foetal exposure during pregnancy [Recovered/Resolved]
  - Adjustment disorder [Recovered/Resolved]

NARRATIVE: CASE EVENT DATE: 20170915
